FAERS Safety Report 14470831 (Version 8)
Quarter: 2018Q4

REPORT INFORMATION
  Report Type: Report from Study
  Country: US (occurrence: US)
  Receive Date: 20180131
  Receipt Date: 20181221
  Transmission Date: 20190204
  Serious: Yes (Other)
  Sender: FDA-Public Use
  Company Number: US-ACTELION-A-NJ2017-164103

PATIENT
  Age: 69 Year
  Sex: Female
  Weight: 76.19 kg

DRUGS (8)
  1. VENTAVIS [Suspect]
     Active Substance: ILOPROST
     Dosage: 5 MCG, 6-9 XDAILY, EVERY 3 HOURS WHILE AWAKE
     Route: 055
     Dates: start: 20171207
  2. VENTAVIS [Suspect]
     Active Substance: ILOPROST
     Dosage: 2.5 MCG, 6-9 XDAILY
     Route: 055
     Dates: start: 20171207
  3. LETAIRIS [Suspect]
     Active Substance: AMBRISENTAN
     Indication: PRODUCT USED FOR UNKNOWN INDICATION
     Route: 065
  4. ADEMPAS [Suspect]
     Active Substance: RIOCIGUAT
     Indication: PRODUCT USED FOR UNKNOWN INDICATION
     Route: 065
  5. SILDENAFIL. [Concomitant]
     Active Substance: SILDENAFIL
  6. VENTAVIS [Suspect]
     Active Substance: ILOPROST
     Indication: PULMONARY HYPERTENSION
     Dosage: 5 MCG, 4X/DAY
     Route: 055
  7. AMLODIPINE [Concomitant]
     Active Substance: AMLODIPINE BESYLATE
  8. VENTAVIS [Suspect]
     Active Substance: ILOPROST
     Dosage: 2.5 MCG, UNK
     Route: 055

REACTIONS (28)
  - Hepatic neoplasm [Unknown]
  - Meniscus injury [Unknown]
  - Nervousness [Unknown]
  - Nasal congestion [Recovering/Resolving]
  - Platelet count decreased [Unknown]
  - Pain [Unknown]
  - Chest pain [Unknown]
  - Epistaxis [Recovered/Resolved]
  - Swelling face [Unknown]
  - Eye swelling [Unknown]
  - Respiratory tract congestion [Unknown]
  - Eye irritation [Unknown]
  - Chest discomfort [Recovered/Resolved]
  - Nausea [Recovering/Resolving]
  - Vascular pain [Unknown]
  - Pain in extremity [Unknown]
  - Peripheral swelling [Unknown]
  - Secretion discharge [Unknown]
  - Feeling abnormal [Unknown]
  - Blood pressure decreased [Unknown]
  - Knee operation [Unknown]
  - Stress fracture [Unknown]
  - Choking [Unknown]
  - Headache [Unknown]
  - Ocular hyperaemia [Unknown]
  - Dizziness [Unknown]
  - Cough [Unknown]
  - Pain in jaw [Recovered/Resolved]

NARRATIVE: CASE EVENT DATE: 20171207
